FAERS Safety Report 4305040-9 (Version None)
Quarter: 2004Q1

REPORT INFORMATION
  Report Type: 
  Country: None (occurrence: None)
  Receive Date: 20040223
  Receipt Date: 20031111
  Transmission Date: 20041129
  Serious: Yes (Hospitalization)
  Sender: FDA-Public Use
  Company Number: TAP2003Q02624

PATIENT
  Age: 66 Year
  Sex: Male

DRUGS (2)
  1. LUPRON DEPOT-4 [Suspect]
     Indication: PROSTATE CANCER
     Dosage: 30 MG, 1 IN 1 4 M, INTRAMUSCULAR
     Route: 030
     Dates: start: 20030625, end: 20031027
  2. NAPROSYN [Concomitant]

REACTIONS (8)
  - EYE SWELLING [None]
  - HYPERSENSITIVITY [None]
  - HYPOTENSION [None]
  - LOSS OF CONSCIOUSNESS [None]
  - PENILE SWELLING [None]
  - SWELLING FACE [None]
  - SWOLLEN TONGUE [None]
  - URTICARIA [None]
